FAERS Safety Report 12655864 (Version 4)
Quarter: 2018Q4

REPORT INFORMATION
  Report Type: Spontaneous
  Country: US (occurrence: US)
  Receive Date: 20160816
  Receipt Date: 20181126
  Transmission Date: 20190204
  Serious: No
  Sender: FDA-Public Use
  Company Number: US-PFIZER INC-2016388406

PATIENT
  Age: 45 Year
  Sex: Male

DRUGS (3)
  1. LYRICA [Suspect]
     Active Substance: PREGABALIN
     Dosage: 150 MG, UNK
  2. LYRICA [Suspect]
     Active Substance: PREGABALIN
     Indication: FIBROMYALGIA
     Dosage: UNK, 3X/DAY (EVERY 8 HOURS)
  3. LYRICA [Suspect]
     Active Substance: PREGABALIN
     Dosage: 200 MG, UNK

REACTIONS (7)
  - Product use issue [Unknown]
  - Product dose omission [Unknown]
  - Intentional product use issue [Unknown]
  - Product administration error [Unknown]
  - Expired product administered [Unknown]
  - Malaise [Unknown]
  - Product storage error [Unknown]
